FAERS Safety Report 11323545 (Version 1)
Quarter: 2015Q3

REPORT INFORMATION
  Report Type: Spontaneous
  Country: US (occurrence: None)
  Receive Date: 20150729
  Receipt Date: 20150729
  Transmission Date: 20151125
  Serious: No
  Sender: FDA-Public Use
  Company Number: None

PATIENT
  Age: 48 Year
  Sex: Female

DRUGS (14)
  1. DAPTOMYCIN. [Suspect]
     Active Substance: DAPTOMYCIN
     Indication: BACTERAEMIA
     Dosage: 500 MG DAILY IV
     Dates: start: 20150103, end: 20150202
  2. METOPROLOL [Concomitant]
     Active Substance: METOPROLOL
  3. ENOXAPARIN [Concomitant]
     Active Substance: ENOXAPARIN
  4. LISINOPRIL. [Concomitant]
     Active Substance: LISINOPRIL
  5. DAPTOMYCIN. [Suspect]
     Active Substance: DAPTOMYCIN
     Indication: ENTEROCOCCAL INFECTION
     Dosage: 500 MG DAILY IV
     Dates: start: 20150103, end: 20150202
  6. CLONAZEPAM. [Concomitant]
     Active Substance: CLONAZEPAM
  7. GUAFENESIN [Concomitant]
     Active Substance: GUAIFENESIN
  8. LOPERAMIDE [Concomitant]
     Active Substance: LOPERAMIDE
  9. LANSOPRAZOLE. [Concomitant]
     Active Substance: LANSOPRAZOLE
  10. LORAZEPAM. [Concomitant]
     Active Substance: LORAZEPAM
  11. SERTRALINE [Concomitant]
     Active Substance: SERTRALINE HYDROCHLORIDE
  12. CEFPODOXIME [Concomitant]
     Active Substance: CEFPODOXIME
  13. CETIRIZINE [Concomitant]
     Active Substance: CETIRIZINE HYDROCHLORIDE
  14. GABAPENTIN. [Concomitant]
     Active Substance: GABAPENTIN

REACTIONS (3)
  - Toxicity to various agents [None]
  - Organising pneumonia [None]
  - Eosinophilic pneumonia chronic [None]

NARRATIVE: CASE EVENT DATE: 20150202
